FAERS Safety Report 5768546-1 (Version None)
Quarter: 2008Q2

REPORT INFORMATION
  Report Type: 
  Country: None (occurrence: None)
  Receive Date: 20080612
  Receipt Date: 20080305
  Transmission Date: 20081010
  Serious: No
  Sender: FDA-Public Use
  Company Number: US-ABBOTT-08P-163-0441552-00

PATIENT
  Sex: Male
  Weight: 71.732 kg

DRUGS (11)
  1. HUMIRA [Suspect]
     Indication: CROHN'S DISEASE
     Route: 058
     Dates: start: 20080301, end: 20080301
  2. HUMIRA [Suspect]
     Dates: start: 20080315, end: 20080315
  3. HUMIRA [Suspect]
  4. ALENDRONATE SODIUM [Concomitant]
     Indication: OSTEOPOROSIS
     Route: 048
  5. LEVOTHYROXINE SODIUM [Concomitant]
     Indication: HYPOTHYROIDISM
     Route: 048
  6. URSODIOL [Concomitant]
     Indication: CHOLANGITIS SCLEROSING
     Route: 048
  7. CALCIUM WITH VITAMIN D [Concomitant]
     Indication: OSTEOPOROSIS
     Route: 048
  8. FOLIC ACID [Concomitant]
     Indication: VITAMIN SUPPLEMENTATION
     Route: 048
  9. FISH OIL [Concomitant]
     Indication: CARDIAC DISORDER
     Route: 048
  10. NICOTINAM. W/PYRIDOXI. HCL/RIBOFL./THIAM. HCL [Concomitant]
     Indication: ANAEMIA
     Route: 048
  11. MULTI-VITAMIN [Concomitant]
     Indication: ANAEMIA
     Route: 048

REACTIONS (3)
  - DIZZINESS [None]
  - FALL [None]
  - GAIT DISTURBANCE [None]
